FAERS Safety Report 24047388 (Version 3)
Quarter: 2024Q3

REPORT INFORMATION
  Report Type: Report from Study
  Country: CA (occurrence: CA)
  Receive Date: 20240703
  Receipt Date: 20240926
  Transmission Date: 20241016
  Serious: Yes (Other)
  Sender: HLS THERAPEUTICS
  Company Number: CA-HLS-202401630

PATIENT
  Age: 75 Year
  Sex: Female

DRUGS (3)
  1. CLOZARIL [Suspect]
     Active Substance: CLOZAPINE
     Indication: Product used for unknown indication
     Dosage: TITRATED?TO?37.5?MG?(6.25?MG?IN?THE?AM,?31.25?MG?AT?NIGHT)?
     Route: 048
     Dates: start: 20240529
  2. APIXABAN [Concomitant]
     Active Substance: APIXABAN
     Indication: Atrial fibrillation
     Route: 065
  3. METOPROLOL [Concomitant]
     Active Substance: METOPROLOL
     Indication: Atrial fibrillation
     Route: 065

REACTIONS (8)
  - Atrial fibrillation [Unknown]
  - C-reactive protein increased [Not Recovered/Not Resolved]
  - Neuropsychological symptoms [Unknown]
  - Depressive symptom [Unknown]
  - Hypotension [Not Recovered/Not Resolved]
  - Subendocardial haemorrhage [Unknown]
  - Depressed level of consciousness [Unknown]
  - Troponin increased [Recovered/Resolved]

NARRATIVE: CASE EVENT DATE: 20240626
